FAERS Safety Report 8660156 (Version 3)
Quarter: 2012Q4

REPORT INFORMATION
  Report Type: 
  Country: US (occurrence: US)
  Receive Date: 20120711
  Receipt Date: 20121017
  Transmission Date: 20130627
  Serious: No
  Sender: FDA-Public Use
  Company Number: US-PFIZER INC-2012161543

PATIENT
  Age: 73 Year
  Sex: Female
  Weight: 74 kg

DRUGS (11)
  1. CYTOMEL [Suspect]
     Indication: HYPOTHYROIDISM
     Dosage: 2.5 ug, UNK
     Route: 048
     Dates: start: 201006
  2. CYTOMEL [Suspect]
     Dosage: 5 ug, UNK
     Route: 048
     Dates: start: 2011
  3. CYTOMEL [Suspect]
     Dosage: 2.5 ug, UNK
     Route: 048
     Dates: end: 20120723
  4. SONATA [Suspect]
     Indication: INSOMNIA
     Dosage: UNK
  5. SYNTHROID [Suspect]
     Indication: HYPOTHYROIDISM
     Dosage: 75 ug, UNK
     Route: 048
  6. SYNTHROID [Suspect]
     Dosage: 88 ug, UNK
     Route: 048
  7. SYNTHROID [Suspect]
     Dosage: 100 ug, UNK
     Route: 048
     Dates: start: 2012
  8. AMBIEN [Suspect]
     Indication: INSOMNIA
     Dosage: UNK
  9. LUNESTA [Suspect]
     Indication: INSOMNIA
     Dosage: UNK
  10. TYLENOL [Suspect]
     Indication: INSOMNIA
     Dosage: UNK
  11. ARMOUR THYROID [Suspect]
     Dosage: UNK
     Dates: start: 2002

REACTIONS (5)
  - Drug ineffective [Unknown]
  - Blood thyroid stimulating hormone increased [Unknown]
  - Insomnia [Unknown]
  - Mood altered [Unknown]
  - Feeling jittery [Unknown]
